FAERS Safety Report 9648518 (Version 3)
Quarter: 2013Q4

REPORT INFORMATION
  Report Type: Report from Study
  Country: US (occurrence: US)
  Receive Date: 20131028
  Receipt Date: 20131114
  Transmission Date: 20140711
  Serious: Yes (Other)
  Sender: FDA-Public Use
  Company Number: US-BAYER-2013-124745

PATIENT
  Age: 57 Year
  Sex: Male

DRUGS (1)
  1. XOFIGO (RADIUM-223 DICHLORIDE) [Suspect]
     Indication: PROSTATE CANCER METASTATIC

REACTIONS (1)
  - Haemoglobin decreased [None]
